FAERS Safety Report 8606842-0 (Version None)
Quarter: 2012Q3

REPORT INFORMATION
  Report Type: 
  Country: None (occurrence: None)
  Receive Date: 20120820
  Receipt Date: 20120810
  Transmission Date: 20120928
  Serious: Yes (Other)
  Sender: FDA-Public Use
  Company Number: CHPA2012US017994

PATIENT
  Age: 48 Year
  Sex: Female

DRUGS (1)
  1. EXCEDRIN EXTRA STRENGTH CAPLETS [Suspect]
     Indication: HEADACHE
     Dosage: 2 DF, UP TO 2 TIMES PER DAY
     Route: 048

REACTIONS (3)
  - ROAD TRAFFIC ACCIDENT [None]
  - HEAD INJURY [None]
  - CONVULSION [None]
